FAERS Safety Report 4285094-9 (Version None)
Quarter: 2004Q1

REPORT INFORMATION
  Report Type: 
  Country: None (occurrence: None)
  Receive Date: 20040204
  Receipt Date: 20030916
  Transmission Date: 20041129
  Serious: Yes (Disabling)
  Sender: FDA-Public Use
  Company Number: US-GLAXOSMITHKLINE-A0426143A

PATIENT
  Age: 9 Year
  Sex: Female

DRUGS (3)
  1. ADVAIR DISKUS 100/50 [Suspect]
     Indication: ASTHMA
     Route: 055
  2. SINGULAIR [Concomitant]
  3. CLARINEX [Concomitant]

REACTIONS (4)
  - ARNOLD-CHIARI MALFORMATION [None]
  - BLEPHAROSPASM [None]
  - CEREBELLAR TUMOUR [None]
  - EYE MOVEMENT DISORDER [None]
